FAERS Safety Report 5386842-7 (Version None)
Quarter: 2007Q3

REPORT INFORMATION
  Report Type: 
  Country: None (occurrence: None)
  Receive Date: 20070713
  Receipt Date: 20070706
  Transmission Date: 20080115
  Serious: Yes (Other)
  Sender: FDA-Public Use
  Company Number: GB-BOEHRINGER INGELHEIM PHARMACEUTICALS, INC.-2007-BP-17224YA

PATIENT
  Sex: Male

DRUGS (2)
  1. TAMSULOSIN HCL [Suspect]
     Indication: MICTURITION DISORDER
     Route: 048
  2. FOLIC ACID [Concomitant]

REACTIONS (1)
  - OESOPHAGEAL CARCINOMA [None]
